FAERS Safety Report 5129693-0 (Version None)
Quarter: 2006Q4

REPORT INFORMATION
  Report Type: 
  Country: None (occurrence: None)
  Receive Date: 20061018
  Receipt Date: 20061005
  Transmission Date: 20070319
  Serious: Yes (Hospitalization)
  Sender: FDA-Public Use
  Company Number: JP-JPN-A200604069

PATIENT
  Age: 31 Year
  Sex: Female

DRUGS (4)
  1. PAXIL [Suspect]
     Indication: DEPRESSION
     Route: 048
     Dates: start: 20051010
  2. RHYTHMY [Concomitant]
     Dosage: 1MG PER DAY
     Route: 048
  3. SULPIRIDE [Concomitant]
     Dates: start: 20051001
  4. KETAMINE HCL [Concomitant]
     Dates: start: 20051001

REACTIONS (4)
  - ABDOMINAL PAIN [None]
  - AMENORRHOEA [None]
  - BLOOD PROLACTIN INCREASED [None]
  - SALPINGITIS [None]
